FAERS Safety Report 10458659 (Version 1)
Quarter: 2014Q3

REPORT INFORMATION
  Report Type: Spontaneous
  Country: US (occurrence: US)
  Receive Date: 20140917
  Receipt Date: 20140917
  Transmission Date: 20150326
  Serious: No
  Sender: FDA-Public Use
  Company Number: US-B.I. PHARMACEUTICALS,INC./RIDGEFIELD-2014-BI-41815BP

PATIENT
  Sex: Male
  Weight: 26.76 kg

DRUGS (1)
  1. CLONIDINE. [Suspect]
     Active Substance: CLONIDINE
     Indication: SLEEP DISORDER THERAPY
     Dosage: 1.5 ANZ
     Route: 065

REACTIONS (2)
  - Medication error [Unknown]
  - Off label use [Unknown]
